FAERS Safety Report 24106645 (Version 2)
Quarter: 2024Q3

REPORT INFORMATION
  Report Type: Spontaneous
  Country: PT (occurrence: PT)
  Receive Date: 20240717
  Receipt Date: 20240826
  Transmission Date: 20241017
  Serious: Yes (Other)
  Sender: MERCK
  Company Number: PT-009507513-2407PRT009879

PATIENT
  Age: 65 Year
  Sex: Female

DRUGS (1)
  1. PEMBROLIZUMAB [Suspect]
     Active Substance: PEMBROLIZUMAB
     Indication: Colorectal cancer metastatic
     Dosage: 200 MILLIGRAM, Q3W
     Dates: start: 20200820, end: 20240311

REACTIONS (2)
  - Intestinal operation [Unknown]
  - Therapy partial responder [Recovered/Resolved]

NARRATIVE: CASE EVENT DATE: 20201219
